FAERS Safety Report 8072653-0 (Version None)
Quarter: 2012Q1

REPORT INFORMATION
  Report Type: 
  Country: None (occurrence: None)
  Receive Date: 20120126
  Receipt Date: 20120124
  Transmission Date: 20120608
  Serious: Yes (Hospitalization)
  Sender: FDA-Public Use
  Company Number: BE-AMGEN-BELCT2012004976

PATIENT
  Age: 39 Year
  Sex: Female

DRUGS (4)
  1. EPIRUBICIN [Concomitant]
     Indication: BREAST CANCER
     Dosage: 100 MG/M2, Q3WK
     Route: 042
     Dates: start: 20111207
  2. CYCLOPHOSPHAMIDE [Concomitant]
     Indication: BREAST CANCER
     Dosage: 600 MG/M2, Q3WK
     Route: 042
     Dates: start: 20111207
  3. DENOSUMAB [Suspect]
     Indication: BREAST CANCER
     Dosage: UNK, Q3WK
     Route: 058
     Dates: start: 20111207
  4. FLUOROURACIL [Concomitant]
     Indication: BREAST CANCER
     Dosage: 600 MG/M2, Q3WK
     Route: 042
     Dates: start: 20111207

REACTIONS (1)
  - PAIN OF SKIN [None]
